FAERS Safety Report 16264072 (Version 4)
Quarter: 2019Q2

REPORT INFORMATION
  Report Type: Spontaneous
  Country: US (occurrence: US)
  Receive Date: 20190502
  Receipt Date: 20190606
  Transmission Date: 20190711
  Serious: Yes (Hospitalization)
  Sender: FDA-Public Use
  Company Number: US-VERTEX PHARMACEUTICALS-2019-003707

PATIENT
  Age: 13 Year
  Sex: Male

DRUGS (2)
  1. PULMOZYME [Concomitant]
     Active Substance: DORNASE ALFA
     Dosage: 1 MG, QD
     Route: 055
  2. ORKAMBI [Suspect]
     Active Substance: IVACAFTOR\LUMACAFTOR
     Indication: CYSTIC FIBROSIS
     Dosage: 2 DOSAGE FORM (200/125 MG EACH), BID
     Route: 048
     Dates: start: 201707

REACTIONS (4)
  - Appendix disorder [Unknown]
  - Hospitalisation [Unknown]
  - Abdominal pain lower [Unknown]
  - Renal cyst [Unknown]

NARRATIVE: CASE EVENT DATE: 201903
